FAERS Safety Report 7487624-2 (Version None)
Quarter: 2011Q2

REPORT INFORMATION
  Report Type: 
  Country: None (occurrence: None)
  Receive Date: 20110518
  Receipt Date: 20110503
  Transmission Date: 20111010
  Serious: No
  Sender: FDA-Public Use
  Company Number: US-B.I. PHARMACEUTICALS,INC./RIDGEFIELD-2011-BP-07674BP

PATIENT
  Sex: Male

DRUGS (8)
  1. AMIODARONE HCL [Concomitant]
     Indication: ATRIAL FIBRILLATION
     Dosage: 200 MG
  2. TOPROL-XL [Concomitant]
     Indication: ATRIAL FIBRILLATION
     Dosage: 25 MG
  3. PROTONIX [Concomitant]
     Dosage: 40 MG
  4. SIMVASTATIN [Concomitant]
  5. DIGOXIN [Concomitant]
  6. FLOMAX [Concomitant]
  7. PRADAXA [Suspect]
     Indication: ATRIAL FIBRILLATION
     Dosage: 300 MG
     Route: 048
     Dates: start: 20110225
  8. VITAMINS [Concomitant]
     Indication: PROPHYLAXIS

REACTIONS (2)
  - GYNAECOMASTIA [None]
  - BREAST TENDERNESS [None]
